FAERS Safety Report 6958902-8 (Version None)
Quarter: 2010Q3

REPORT INFORMATION
  Report Type: 
  Country: None (occurrence: None)
  Receive Date: 20100831
  Receipt Date: 20100819
  Transmission Date: 20110219
  Serious: No
  Sender: FDA-Public Use
  Company Number: US-BIOGENIDEC-2010BI029079

PATIENT
  Sex: Male

DRUGS (2)
  1. AVONEX [Suspect]
     Indication: MULTIPLE SCLEROSIS
     Route: 030
     Dates: start: 20000101, end: 20070101
  2. AVONEX [Suspect]
     Route: 030
     Dates: start: 20070101

REACTIONS (5)
  - ANXIETY [None]
  - DEPRESSION [None]
  - HYPERTENSION [None]
  - MEMORY IMPAIRMENT [None]
  - PANIC ATTACK [None]
